FAERS Safety Report 13449909 (Version 1)
Quarter: 2017Q2

REPORT INFORMATION
  Report Type: Spontaneous
  Country: US (occurrence: US)
  Receive Date: 20170417
  Receipt Date: 20170417
  Transmission Date: 20170830
  Serious: No
  Sender: FDA-Public Use
  Company Number: US-BION-20160252

PATIENT
  Age: 72 Year

DRUGS (2)
  1. ASPIRIN. [Suspect]
     Active Substance: ASPIRIN
     Dosage: 2 DSF IN THE MORNING
     Dates: start: 20160620
  2. ALEVE [Suspect]
     Active Substance: NAPROXEN SODIUM
     Indication: PAIN
     Dosage: 1-3 DSF DAILY IN DIVIDED DOSES
     Route: 048
     Dates: start: 20160620, end: 20160620

REACTIONS (2)
  - Feeling cold [Not Recovered/Not Resolved]
  - Tremor [Not Recovered/Not Resolved]

NARRATIVE: CASE EVENT DATE: 20160620
